FAERS Safety Report 10957735 (Version 3)
Quarter: 2015Q2

REPORT INFORMATION
  Report Type: Report from Study
  Country: PL (occurrence: PL)
  Receive Date: 20150326
  Receipt Date: 20150519
  Transmission Date: 20150821
  Serious: Yes (Death, Life-Threatening, Hospitalization)
  Sender: FDA-Public Use
  Company Number: PL-AMGEN-POLCT2015028674

PATIENT
  Age: 22 Year
  Sex: Male
  Weight: 71 kg

DRUGS (34)
  1. NOXAFIL [Concomitant]
     Active Substance: POSACONAZOLE
     Dosage: 5 ML, UNK
     Route: 048
     Dates: start: 20150314
  2. CAPHOSOL [Concomitant]
     Dosage: 1 UNK, UNK
     Route: 061
     Dates: start: 20150123, end: 20150319
  3. SANDOGLOBULIN [Concomitant]
     Active Substance: HUMAN IMMUNOGLOBULIN G
     Dosage: 6 G, UNK
     Route: 042
     Dates: start: 20150319, end: 20150320
  4. ACETAMINOPHEN. [Concomitant]
     Active Substance: ACETAMINOPHEN
     Dosage: 1 G, UNK
     Route: 042
     Dates: start: 20150313, end: 20150321
  5. LACTULOSUM [Concomitant]
     Dosage: 15 ML, UNK
     Route: 048
     Dates: start: 20150320, end: 20150320
  6. FUROSEMIDUM                        /00032601/ [Concomitant]
     Dosage: 10 MG, UNK
     Route: 048
     Dates: start: 20150223, end: 20150309
  7. METHOTREXATE [Concomitant]
     Active Substance: METHOTREXATE
     Dosage: 15 MG, UNK
     Route: 037
     Dates: start: 20150227, end: 20150227
  8. KALII CHLORIDUM [Concomitant]
     Dosage: 6 G, UNK
     Route: 042
     Dates: start: 20150214, end: 20150315
  9. VITACON                            /00032401/ [Concomitant]
     Dosage: 1 UNK, UNK
     Route: 042
     Dates: start: 20150320, end: 20150322
  10. URSOPOL [Concomitant]
     Dosage: 1 UNK, UNK
     Route: 048
     Dates: start: 20150306
  11. SPIRONOLACTONE. [Concomitant]
     Active Substance: SPIRONOLACTONE
     Dosage: 200 MG, UNK
     Route: 042
     Dates: start: 20150223, end: 20150302
  12. PLATELETS [Concomitant]
     Active Substance: HUMAN PLATELET, ALLOGENIC
     Dosage: 3 UNK, UNK
     Route: 042
     Dates: start: 20150227, end: 20150321
  13. ABELCET [Concomitant]
     Active Substance: AMPHOTERICIN B\DIMYRISTOYLPHOSPHATIDYLCHOLINE, DL-\DIMYRISTOYLPHOSPHATIDYLGLYCEROL, DL-
     Dosage: 300 MG, UNK
     Route: 042
     Dates: start: 20150213, end: 20150302
  14. VANCOCIN [Concomitant]
     Active Substance: VANCOMYCIN HYDROCHLORIDE
     Dosage: 1 G, UNK
     Route: 042
     Dates: start: 20150315
  15. CYTOSINE ARABINOSIDE [Concomitant]
     Active Substance: CYTARABINE
     Dosage: 40 MG, UNK
     Route: 037
     Dates: start: 20150227, end: 20150227
  16. ACETYLCYSTEIN [Concomitant]
     Active Substance: ACETYLCYSTEINE
     Dosage: 1 UNK, UNK
     Route: 061
     Dates: start: 20150210, end: 20150320
  17. METOCLOPRAMIDUM [Concomitant]
     Dosage: 10 MG, UNK
     Route: 042
     Dates: start: 20150318, end: 20150318
  18. DEXAMETHASONE. [Concomitant]
     Active Substance: DEXAMETHASONE
     Dosage: 4-20 MG, UNK
     Route: 042
     Dates: start: 20150227, end: 20150320
  19. HYDROCORTISONE. [Concomitant]
     Active Substance: HYDROCORTISONE
     Dosage: 100 MG, UNK
     Route: 042
     Dates: start: 20150319, end: 20150319
  20. BLINATUMOMAB [Suspect]
     Active Substance: BLINATUMOMAB
     Indication: ACUTE LYMPHOCYTIC LEUKAEMIA
     Dosage: 28 MCG, UNK
     Route: 041
     Dates: start: 20150310, end: 20150320
  21. HEPA-MERZ                          /01390204/ [Concomitant]
     Dosage: 1 UNK, UNK
     Route: 042
     Dates: start: 20150224, end: 20150318
  22. MAGNESIUM SULPHATE                 /07507001/ [Concomitant]
     Active Substance: MAGNESIUM SULFATE
     Dosage: 1 UNK, UNK
     Route: 042
     Dates: start: 20150310, end: 20150321
  23. METAMIZOL                          /06276702/ [Concomitant]
     Active Substance: METAMIZOLE
     Dosage: 2 ML, UNK
     Route: 042
     Dates: start: 20150315, end: 20150321
  24. CAPTOPRILUM [Concomitant]
     Dosage: 12.5 MG, UNK
     Route: 060
     Dates: start: 20150321, end: 20150321
  25. KRIOPRECIPITAT [Concomitant]
     Dosage: 7 UNK, UNK
     Route: 042
     Dates: start: 20150311, end: 20150320
  26. FRESH FROZEN PLASMA [Concomitant]
     Active Substance: HUMAN PLASMA
     Dosage: 3 UNK, UNK
     Route: 042
     Dates: start: 20150321, end: 20150321
  27. ZOFRAN                             /00955301/ [Concomitant]
     Active Substance: ONDANSETRON HYDROCHLORIDE
     Dosage: 1 UNK, UNK
     Route: 042
     Dates: start: 20150210, end: 20150318
  28. CLEMASTINUM [Concomitant]
     Dosage: 2 MG, UNK
     Route: 042
     Dates: start: 20150319, end: 20150319
  29. MILURIT [Concomitant]
     Active Substance: ALLOPURINOL
     Dosage: 300 MG, UNK
     Route: 048
     Dates: start: 20150209
  30. ENARENAL [Concomitant]
     Active Substance: ENALAPRIL
     Dosage: 5 MG, UNK
     Route: 048
     Dates: start: 20150128
  31. FORTUM                             /00559701/ [Concomitant]
     Active Substance: CEFTAZIDIME
     Dosage: 2 G, UNK
     Route: 042
     Dates: start: 20150227, end: 20150306
  32. MERONEM [Concomitant]
     Active Substance: MEROPENEM
     Dosage: 1 G, UNK
     Route: 042
     Dates: start: 20150310
  33. METOPROLOL TARTRATE. [Concomitant]
     Active Substance: METOPROLOL TARTRATE
     Dosage: 25-50 MG, UNK
     Route: 048
     Dates: start: 20150118, end: 20150322
  34. RED BLOOD CELLS [Concomitant]
     Active Substance: HUMAN RED BLOOD CELL
     Dosage: 1 UNK, UNK
     Route: 042
     Dates: start: 20150311, end: 20150321

REACTIONS (1)
  - Acute respiratory failure [Fatal]

NARRATIVE: CASE EVENT DATE: 20150322
